FAERS Safety Report 6180626-8 (Version None)
Quarter: 2009Q2

REPORT INFORMATION
  Report Type: 
  Country: None (occurrence: None)
  Receive Date: 20090506
  Receipt Date: 20090428
  Transmission Date: 20091009
  Serious: Yes (Hospitalization)
  Sender: FDA-Public Use
  Company Number: PHHO2009KR04404

PATIENT
  Sex: Male
  Weight: 63 kg

DRUGS (1)
  1. AMN107 AMN+CAP [Suspect]
     Indication: CHRONIC MYELOID LEUKAEMIA
     Dosage: 400 MG, BID
     Route: 048
     Dates: start: 20090320, end: 20090409

REACTIONS (3)
  - CHEST DISCOMFORT [None]
  - CORONARY ARTERY DISEASE [None]
  - ELECTROCARDIOGRAM QT PROLONGED [None]
